FAERS Safety Report 23346541 (Version 1)
Quarter: 2023Q4

REPORT INFORMATION
  Report Type: Spontaneous
  Country: US (occurrence: US)
  Receive Date: 20231228
  Receipt Date: 20231228
  Transmission Date: 20240110
  Serious: Yes (Other)
  Sender: FDA-Public Use
  Company Number: US-SUN PHARMACEUTICAL INDUSTRIES LTD-2023R1-425358

PATIENT
  Age: 4 Decade
  Sex: Male

DRUGS (1)
  1. TOPIRAMATE [Suspect]
     Active Substance: TOPIRAMATE
     Indication: Weight decreased
     Dosage: UNKNOWN
     Route: 065

REACTIONS (1)
  - Choroidal effusion [Recovering/Resolving]
